FAERS Safety Report 24579441 (Version 3)
Quarter: 2024Q4

REPORT INFORMATION
  Report Type: Spontaneous
  Country: US (occurrence: US)
  Receive Date: 20241105
  Receipt Date: 20241220
  Transmission Date: 20250115
  Serious: Yes (Hospitalization)
  Sender: SANOFI AVENTIS
  Company Number: US-SA-2024SA315279

PATIENT
  Age: 59 Year
  Sex: Female
  Weight: 93.8 kg

DRUGS (22)
  1. DUPIXENT [Suspect]
     Active Substance: DUPILUMAB
     Indication: Illness
     Dosage: 300 MG, QOW
     Route: 058
  2. DUPIXENT [Suspect]
     Active Substance: DUPILUMAB
     Indication: Ill-defined disorder
  3. DUPIXENT [Suspect]
     Active Substance: DUPILUMAB
     Indication: Asthma
  4. ACETAMINOPHEN [Concomitant]
     Active Substance: ACETAMINOPHEN
  5. OFEV [Concomitant]
     Active Substance: NINTEDANIB
  6. PEPCID [Concomitant]
     Active Substance: FAMOTIDINE
  7. LOPERAMIDE [Concomitant]
     Active Substance: LOPERAMIDE
  8. OXYGEN [Concomitant]
     Active Substance: OXYGEN
  9. TRESIBA [Concomitant]
     Active Substance: INSULIN DEGLUDEC
  10. ASPIRIN [Concomitant]
     Active Substance: ASPIRIN
  11. METFORMIN HYDROCHLORIDE [Concomitant]
     Active Substance: METFORMIN HYDROCHLORIDE
  12. ATORVASTATIN CALCIUM [Concomitant]
     Active Substance: ATORVASTATIN CALCIUM
  13. H.P. ACTHAR [Concomitant]
     Active Substance: CORTICOTROPIN
     Dosage: UNK
  14. GABAPENTIN [Concomitant]
     Active Substance: GABAPENTIN
  15. SYMBICORT [Concomitant]
     Active Substance: BUDESONIDE\FORMOTEROL FUMARATE DIHYDRATE
  16. DOVATO [Concomitant]
     Active Substance: DOLUTEGRAVIR SODIUM\LAMIVUDINE
  17. TRESIBA [Concomitant]
     Active Substance: INSULIN DEGLUDEC
  18. DOXYCYCLINE [Concomitant]
     Active Substance: DOXYCYCLINE
  19. NOVOLOG [Concomitant]
     Active Substance: INSULIN ASPART
  20. LOSARTAN POTASSIUM [Concomitant]
     Active Substance: LOSARTAN POTASSIUM
  21. H.P. ACTHAR [Concomitant]
     Active Substance: CORTICOTROPIN
  22. ROSUVASTATIN CALCIUM [Concomitant]
     Active Substance: ROSUVASTATIN CALCIUM

REACTIONS (3)
  - Lung disorder [Unknown]
  - Feeling abnormal [Unknown]
  - Hospitalisation [Unknown]

NARRATIVE: CASE EVENT DATE: 20241203
